FAERS Safety Report 10147239 (Version 1)
Quarter: 2014Q2

REPORT INFORMATION
  Report Type: Spontaneous
  Country: US (occurrence: US)
  Receive Date: 20140501
  Receipt Date: 20140501
  Transmission Date: 20141212
  Serious: No
  Sender: FDA-Public Use
  Company Number: -SAAVPROD-HECT-1000202

PATIENT
  Age: 36 Year
  Sex: Female

DRUGS (1)
  1. DOXERCALCIFEROL [Suspect]
     Indication: DIALYSIS
     Dosage: 3 MCG, 3X/W  (MONDAY, WEDNESDAY AND FRIDAY)
     Route: 042
     Dates: start: 2006

REACTIONS (2)
  - Cough [Not Recovered/Not Resolved]
  - Off label use [Unknown]
